FAERS Safety Report 5658890-0 (Version None)
Quarter: 2008Q1

REPORT INFORMATION
  Report Type: 
  Country: None (occurrence: None)
  Receive Date: 20080310
  Receipt Date: 20070427
  Transmission Date: 20080703
  Serious: No
  Sender: FDA-Public Use
  Company Number: US-BAYER-200711323BCC

PATIENT
  Sex: Female
  Weight: 68 kg

DRUGS (5)
  1. ALEVE [Suspect]
     Indication: DRUG USE FOR UNKNOWN INDICATION
     Dosage: UNIT DOSE: 220 MG
     Route: 048
     Dates: end: 20070427
  2. VICODIN [Concomitant]
  3. UNKNOWN FOR BLOOD PRESSURE [Concomitant]
  4. THYROID TAB [Concomitant]
  5. ALLERGY RELIEF MEDICINE [Concomitant]

REACTIONS (1)
  - CONTUSION [None]
